FAERS Safety Report 22218710 (Version 3)
Quarter: 2023Q4

REPORT INFORMATION
  Report Type: Spontaneous
  Country: US (occurrence: US)
  Receive Date: 20230417
  Receipt Date: 20231204
  Transmission Date: 20240110
  Serious: Yes (Hospitalization, Other)
  Sender: FDA-Public Use
  Company Number: US-PFIZER INC-PV202300068657

PATIENT
  Age: 71 Year
  Sex: Female
  Weight: 63.49 kg

DRUGS (1)
  1. XELJANZ XR [Suspect]
     Active Substance: TOFACITINIB CITRATE
     Indication: Rheumatoid arthritis
     Dosage: 11 MG, 1X/DAY

REACTIONS (7)
  - Condition aggravated [Unknown]
  - Bronchiolitis [Unknown]
  - Nasopharyngitis [Unknown]
  - Cough [Unknown]
  - Influenza [Unknown]
  - Hypoacusis [Unknown]
  - Sleep disorder due to general medical condition, insomnia type [Unknown]
